FAERS Safety Report 8825439 (Version 1)
Quarter: 2012Q4

REPORT INFORMATION
  Report Type: 
  Country: FR (occurrence: FR)
  Receive Date: 20121004
  Receipt Date: 20121004
  Transmission Date: 20130627
  Serious: Yes (Hospitalization)
  Sender: FDA-Public Use
  Company Number: FR-NAPPMUNDI-GBR-2012-0011565

PATIENT
  Age: 82 Year
  Sex: Male

DRUGS (6)
  1. OXYCODONE HYDROCHLORIDE [Suspect]
     Indication: BONE PAIN
     Dosage: UNK
  2. ZOMETA [Suspect]
     Indication: METASTASES TO BONE
     Dosage: 0.33 DF, monthly
     Route: 042
     Dates: start: 201208
  3. CASODEX [Suspect]
     Indication: NEOPLASM PROSTATE
     Dosage: 50 mg, daily
     Route: 048
  4. IMOVANE [Suspect]
     Indication: PRODUCT USED FOR UNKNOWN INDICATION
     Route: 065
  5. CETIRIZINE [Suspect]
     Indication: RASH
     Route: 065
  6. GUTRON [Suspect]
     Indication: PRODUCT USED FOR UNKNOWN INDICATION
     Dosage: 2.5 mg, tid
     Route: 048

REACTIONS (1)
  - Parotitis [Recovered/Resolved]
